FAERS Safety Report 6391304-4 (Version None)
Quarter: 2009Q4

REPORT INFORMATION
  Report Type: 
  Country: None (occurrence: None)
  Receive Date: 20091007
  Receipt Date: 20090924
  Transmission Date: 20100525
  Serious: Yes (Other)
  Sender: FDA-Public Use
  Company Number: PHEH2009US12010

PATIENT

DRUGS (3)
  1. DIOVAN [Suspect]
     Indication: BLOOD PRESSURE
     Dosage: 160 MG, UNK
  2. NORVASC [Suspect]
     Indication: BLOOD PRESSURE
  3. ALBUTEROL [Suspect]

REACTIONS (2)
  - ASTHMA [None]
  - BLOOD POTASSIUM DECREASED [None]
